FAERS Safety Report 8071967-8 (Version None)
Quarter: 2012Q1

REPORT INFORMATION
  Report Type: 
  Country: None (occurrence: None)
  Receive Date: 20120124
  Receipt Date: 20120124
  Transmission Date: 20120608
  Serious: Yes (Life-Threatening, Hospitalization)
  Sender: FDA-Public Use
  Company Number: None

PATIENT
  Age: 51 Year
  Sex: Female
  Weight: 84.5 kg

DRUGS (2)
  1. PREDNISONE [Concomitant]
  2. YAZ [Suspect]
     Indication: MENORRHAGIA
     Dosage: 3 MG DROSPIRENONE QD 047 : .02 MG ETHINYL ESTRADIOL QD 047
     Route: 048
     Dates: start: 20080101, end: 20100101

REACTIONS (6)
  - DYSPNOEA [None]
  - PULMONARY EMBOLISM [None]
  - DEEP VEIN THROMBOSIS [None]
  - OEDEMA PERIPHERAL [None]
  - ECCHYMOSIS [None]
  - DIZZINESS [None]
